FAERS Safety Report 11770074 (Version 2)
Quarter: 2016Q1

REPORT INFORMATION
  Report Type: Spontaneous
  Country: US (occurrence: US)
  Receive Date: 20151123
  Receipt Date: 20160105
  Transmission Date: 20160525
  Serious: No
  Sender: FDA-Public Use
  Company Number: US-PFIZER INC-2015396575

PATIENT
  Age: 13 Year
  Sex: Female
  Weight: 49.89 kg

DRUGS (1)
  1. QUILLIVANT XR [Suspect]
     Active Substance: METHYLPHENIDATE HYDROCHLORIDE
     Dosage: 600 MG, UNK
     Dates: start: 2014

REACTIONS (2)
  - Product quality issue [Unknown]
  - Emotional disorder [Unknown]

NARRATIVE: CASE EVENT DATE: 2015
